FAERS Safety Report 6756146-6 (Version None)
Quarter: 2010Q2

REPORT INFORMATION
  Report Type: 
  Country: None (occurrence: None)
  Receive Date: 20100604
  Receipt Date: 20100527
  Transmission Date: 20101027
  Serious: Yes (Other)
  Sender: FDA-Public Use
  Company Number: US-PFIZER INC-2004074159

PATIENT
  Sex: Male
  Weight: 69.4 kg

DRUGS (6)
  1. LIPITOR [Suspect]
     Indication: BLOOD CHOLESTEROL INCREASED
     Dosage: 20 MG, UNK
     Route: 048
     Dates: start: 19990101
  2. B-KOMPLEX ^LECIVA^ [Concomitant]
     Route: 065
  3. FOLIC ACID [Concomitant]
     Route: 065
  4. FISH OIL [Concomitant]
     Route: 065
  5. ACETYLSALICYLIC ACID [Concomitant]
     Route: 065
  6. ESCITALOPRAM [Concomitant]
     Route: 065

REACTIONS (4)
  - BLOOD CALCIUM INCREASED [None]
  - CHEMOTHERAPY [None]
  - DRUG INEFFECTIVE [None]
  - TRANSAMINASES INCREASED [None]
